FAERS Safety Report 19568779 (Version 1)
Quarter: 2021Q3

REPORT INFORMATION
  Report Type: Spontaneous
  Country: NL (occurrence: NL)
  Receive Date: 20210716
  Receipt Date: 20210716
  Transmission Date: 20211014
  Serious: Yes (Congenital Anomaly)
  Sender: FDA-Public Use
  Company Number: NL-TEVA-2021-NL-1932592

PATIENT
  Age: 0 Week

DRUGS (5)
  1. PREGABALINE CAPSULE 150MG / BRAND NAME NOT SPECIFIED [Suspect]
     Active Substance: PREGABALIN
     Indication: PSYCHOTIC DISORDER
     Dosage: 2 DD 150 MG , UNIT DOSE : 150 MG ,THERAPY START DATE AND END DATE : ASKU
  2. METHYLFENIDAAT CAPSULE MGA 10MG / BRAND NAME NOT SPECIFIED [Suspect]
     Active Substance: METHYLPHENIDATE HYDROCHLORIDE
     Indication: ATTENTION DEFICIT HYPERACTIVITY DISORDER
     Dosage: 7 DD 10 MG  ,UNIT DOSE : 10 MG , THERAPY START DATE AND END DATE : ASKU
  3. HALDOL [Suspect]
     Active Substance: HALOPERIDOL
     Indication: PSYCHOTIC DISORDER
     Dosage: 4 MILLIGRAM DAILY; 1 DD 4 MG  ,  THERAPY START DATE AND END DATE : ASKU
  4. PAROXETINE TABLET 20MG / BRAND NAME NOT SPECIFIED [Suspect]
     Active Substance: PAROXETINE
     Indication: DEPRESSION
     Dosage: 20 MILLIGRAM DAILY; 1 DD 20 MG , THERAPY START DATE AND END DATE : ASKU
  5. ZOPICLON TABLET 7,5MG / BRAND NAME NOT SPECIFIED [Suspect]
     Active Substance: ZOPICLONE
     Indication: POST-TRAUMATIC STRESS DISORDER
     Dosage: 7.5 MILLIGRAM DAILY; 1 DD 7.5 MG ,  THERAPY START DATE AND END DATE : ASKU

REACTIONS (4)
  - Maternal exposure during pregnancy [Unknown]
  - Ectopia cordis [Not Recovered/Not Resolved]
  - Spina bifida [Not Recovered/Not Resolved]
  - Abdominal wall anomaly [Not Recovered/Not Resolved]

NARRATIVE: CASE EVENT DATE: 20210612
